FAERS Safety Report 24382731 (Version 1)
Quarter: 2024Q4

REPORT INFORMATION
  Report Type: Spontaneous
  Country: US (occurrence: US)
  Receive Date: 20241001
  Receipt Date: 20241001
  Transmission Date: 20250114
  Serious: Yes (Other)
  Sender: MYLAN
  Company Number: US-MYLANLABS-2024M1086641

PATIENT
  Age: 6 Year
  Sex: Male

DRUGS (3)
  1. PREDNISONE [Suspect]
     Active Substance: PREDNISONE
     Indication: Juvenile xanthogranuloma
     Dosage: UNK
     Route: 048
  2. CLOFARABINE [Suspect]
     Active Substance: CLOFARABINE
     Indication: Juvenile xanthogranuloma
     Dosage: UNK
     Route: 065
  3. VINBLASTINE [Suspect]
     Active Substance: VINBLASTINE
     Indication: Juvenile xanthogranuloma
     Dosage: UNK
     Route: 042

REACTIONS (1)
  - Drug ineffective [Unknown]
